FAERS Safety Report 25155943 (Version 1)
Quarter: 2025Q2

REPORT INFORMATION
  Report Type: Spontaneous
  Country: SI (occurrence: SI)
  Receive Date: 20250403
  Receipt Date: 20250403
  Transmission Date: 20250716
  Serious: Yes (Other)
  Sender: JOHNSON AND JOHNSON
  Company Number: SI-JNJFOC-20250377330

PATIENT
  Age: 68 Year
  Sex: Male

DRUGS (1)
  1. TECVAYLI [Suspect]
     Active Substance: TECLISTAMAB-CQYV
     Indication: Plasma cell myeloma
     Route: 058
     Dates: start: 202405, end: 202412

REACTIONS (3)
  - Neuroendocrine carcinoma of the skin [Unknown]
  - Cytomegalovirus colitis [Unknown]
  - Clostridium difficile colitis [Unknown]
